FAERS Safety Report 8956503 (Version 1)
Quarter: 2012Q4

REPORT INFORMATION
  Report Type: 
  Country: AU (occurrence: AU)
  Receive Date: 20121210
  Receipt Date: 20121210
  Transmission Date: 20130627
  Serious: Yes (Other)
  Sender: FDA-Public Use
  Company Number: AU-SANOFI-AVENTIS-2012SA088418

PATIENT
  Age: 77 Year
  Sex: Male

DRUGS (1)
  1. CLEXANE [Suspect]
     Indication: DRUG USE FOR UNKNOWN INDICATION
     Route: 065
     Dates: end: 20121129

REACTIONS (4)
  - Endocarditis bacterial [Unknown]
  - Renal failure [Unknown]
  - Platelet count decreased [Unknown]
  - Infusion site extravasation [Unknown]
